FAERS Safety Report 18713615 (Version 1)
Quarter: 2021Q1

REPORT INFORMATION
  Report Type: Spontaneous
  Country: US (occurrence: US)
  Receive Date: 20210107
  Receipt Date: 20210107
  Transmission Date: 20210419
  Serious: Yes (Other)
  Sender: FDA-Public Use
  Company Number: US-SERVIER-S20013423

PATIENT

DRUGS (2)
  1. ONCASPAR [Suspect]
     Active Substance: PEGASPARGASE
     Indication: ACUTE LYMPHOCYTIC LEUKAEMIA
     Dosage: UNK
     Route: 042
     Dates: start: 202003
  2. JAKAFI [Concomitant]
     Active Substance: RUXOLITINIB
     Indication: ACUTE LYMPHOCYTIC LEUKAEMIA
     Dosage: 100 MG, BID, ON DAYS 1?10 OR 1?14 OF EACH CYCLE
     Dates: start: 202003

REACTIONS (2)
  - Hyperlipidaemia [Unknown]
  - Pancreatitis [Unknown]

NARRATIVE: CASE EVENT DATE: 202004
